FAERS Safety Report 7183007-3 (Version None)
Quarter: 2010Q4

REPORT INFORMATION
  Report Type: 
  Country: None (occurrence: None)
  Receive Date: 20101222
  Receipt Date: 20101215
  Transmission Date: 20110411
  Serious: No
  Sender: FDA-Public Use
  Company Number: US-PFIZER INC-2010173720

PATIENT
  Sex: Female
  Weight: 63.492 kg

DRUGS (4)
  1. EFFEXOR XR [Suspect]
     Indication: MENOPAUSAL DEPRESSION
     Dosage: 150 MG, 1X/DAY
  2. EFFEXOR XR [Suspect]
     Dosage: 150 MG, ALTERNATE DAY
     Dates: end: 20101201
  3. VITAMINS [Concomitant]
     Dosage: UNK
  4. HYDROCHLOROTHIAZIDE [Concomitant]
     Dosage: UNK
     Dates: end: 20100101

REACTIONS (3)
  - HANGOVER [None]
  - HOT FLUSH [None]
  - IRRITABILITY [None]
